FAERS Safety Report 24353039 (Version 1)
Quarter: 2024Q3

REPORT INFORMATION
  Report Type: Report from Study
  Country: CO (occurrence: CO)
  Receive Date: 20240923
  Receipt Date: 20240923
  Transmission Date: 20241016
  Serious: No
  Sender: ROCHE
  Company Number: CO-ROCHE-3465200

PATIENT
  Age: 56 Year
  Sex: Female

DRUGS (11)
  1. HERCEPTIN [Suspect]
     Active Substance: TRASTUZUMAB
     Indication: Breast cancer
     Dosage: THERAPY COMPLETED
     Route: 041
     Dates: start: 20200413, end: 20200709
  2. HERCEPTIN [Suspect]
     Active Substance: TRASTUZUMAB
     Dosage: THERAPY COMPLETED.
     Route: 042
     Dates: start: 20200820, end: 20210408
  3. AVASTIN [Suspect]
     Active Substance: BEVACIZUMAB
     Indication: Breast cancer
     Route: 042
  4. KADCYLA [Suspect]
     Active Substance: ADO-TRASTUZUMAB EMTANSINE
     Indication: Breast cancer
     Route: 042
  5. PERJETA [Suspect]
     Active Substance: PERTUZUMAB
     Indication: Breast cancer
     Route: 042
  6. TECENTRIQ [Suspect]
     Active Substance: ATEZOLIZUMAB
     Indication: Breast cancer
     Route: 041
  7. XELODA [Suspect]
     Active Substance: CAPECITABINE
     Indication: Breast cancer
     Route: 048
  8. AMLODIPINE [Concomitant]
     Active Substance: AMLODIPINE BESYLATE
  9. LETROZOLE [Concomitant]
     Active Substance: LETROZOLE
  10. TAXOL [Concomitant]
     Active Substance: PACLITAXEL
  11. CYTOXAN [Concomitant]
     Active Substance: CYCLOPHOSPHAMIDE

REACTIONS (2)
  - Spinal pain [Recovered/Resolved]
  - Osteoporosis [Recovering/Resolving]

NARRATIVE: CASE EVENT DATE: 20230801
